FAERS Safety Report 10440579 (Version 2)
Quarter: 2014Q3

REPORT INFORMATION
  Report Type: Spontaneous
  Country: JP (occurrence: JP)
  Receive Date: 20140909
  Receipt Date: 20140930
  Transmission Date: 20150326
  Serious: Yes (Other)
  Sender: FDA-Public Use
  Company Number: JP-PFIZER INC-2014248720

PATIENT

DRUGS (2)
  1. CELECOX [Suspect]
     Active Substance: CELECOXIB
     Dosage: UNK, AS NEEDED
     Route: 048
  2. CELECOX [Suspect]
     Active Substance: CELECOXIB
     Dosage: UNK
     Route: 048

REACTIONS (1)
  - Atrial fibrillation [Unknown]
